FAERS Safety Report 7822052 (Version 2)
Quarter: 2012Q4

REPORT INFORMATION
  Report Type: 
  Country: US (occurrence: US)
  Receive Date: 20110222
  Receipt Date: 20121026
  Transmission Date: 20130627
  Serious: Yes (Other)
  Sender: FDA-Public Use
  Company Number: US-ROCHE-738912

PATIENT
  Sex: Female
  Weight: 53.5 kg

DRUGS (7)
  1. ACCUTANE [Suspect]
     Indication: ACNE CYSTIC
     Route: 065
     Dates: start: 20000914, end: 20010806
  2. ACCUTANE [Suspect]
     Route: 065
  3. ALEVE [Concomitant]
     Route: 065
  4. CELEBREX [Concomitant]
     Route: 065
     Dates: start: 2000, end: 2006
  5. PROZAC [Concomitant]
     Indication: DEPRESSION
     Route: 065
  6. LORAZEPAM [Concomitant]
     Indication: DEPRESSION
     Route: 065
  7. EFFEXOR [Concomitant]
     Route: 065

REACTIONS (7)
  - Gastrointestinal injury [Unknown]
  - Colitis ulcerative [Unknown]
  - Inflammatory bowel disease [Unknown]
  - Depression [Not Recovered/Not Resolved]
  - Arthritis [Unknown]
  - Suicidal ideation [Unknown]
  - Irritable bowel syndrome [Unknown]
